FAERS Safety Report 12973866 (Version 2)
Quarter: 2017Q1

REPORT INFORMATION
  Report Type: Spontaneous
  Country: US (occurrence: US)
  Receive Date: 20161124
  Receipt Date: 20170120
  Transmission Date: 20170428
  Serious: No
  Sender: FDA-Public Use
  Company Number: US-ASTRAZENECA-2016SF22026

PATIENT
  Age: 23520 Day
  Sex: Female
  Weight: 87.5 kg

DRUGS (1)
  1. PULMICORT FLEXHALER [Suspect]
     Active Substance: BUDESONIDE
     Indication: BRONCHITIS
     Dosage: 180MCG ONE PUFF TWICE A DAY
     Route: 055
     Dates: start: 20161113

REACTIONS (5)
  - Cough [Unknown]
  - Device failure [Unknown]
  - Product use issue [Unknown]
  - Off label use [Unknown]
  - Circumstance or information capable of leading to medication error [Unknown]

NARRATIVE: CASE EVENT DATE: 20161113
